FAERS Safety Report 12740924 (Version 2)
Quarter: 2016Q4

REPORT INFORMATION
  Report Type: Spontaneous
  Country: US (occurrence: US)
  Receive Date: 20160914
  Receipt Date: 20161109
  Transmission Date: 20170207
  Serious: Yes (Hospitalization, Other)
  Sender: FDA-Public Use
  Company Number: US-BEH-2016073413

PATIENT
  Age: 52 Year
  Sex: Male
  Weight: 70 kg

DRUGS (15)
  1. PRIVIGEN [Suspect]
     Active Substance: HUMAN IMMUNOGLOBULIN G
     Dosage: 100 MG/KG
     Route: 042
     Dates: start: 20150618
  2. ECULIZUMAB [Concomitant]
     Active Substance: ECULIZUMAB
     Indication: IMMUNOSUPPRESSION
     Dosage: 1200 MG, QD
     Route: 042
     Dates: start: 20150617
  3. PRIVIGEN [Suspect]
     Active Substance: HUMAN IMMUNOGLOBULIN G
     Dosage: 100 MG/KG
     Route: 042
     Dates: start: 20150619, end: 20150619
  4. PRIVIGEN [Suspect]
     Active Substance: HUMAN IMMUNOGLOBULIN G
     Dosage: 100 MG/KG
     Route: 042
     Dates: start: 20150610
  5. PRIVIGEN [Suspect]
     Active Substance: HUMAN IMMUNOGLOBULIN G
     Indication: IMMUNOSUPPRESSION
     Dosage: 100 MG/KG, DAILY OR ALTERNATE DAYS
     Route: 042
     Dates: start: 20150603
  6. PRIVIGEN [Suspect]
     Active Substance: HUMAN IMMUNOGLOBULIN G
     Indication: ABO INCOMPATIBILITY
     Dosage: 100 MG/KG, UNK
     Route: 042
  7. PRIVIGEN [Suspect]
     Active Substance: HUMAN IMMUNOGLOBULIN G
     Dosage: 100 MG/KG
     Route: 042
     Dates: start: 20150608
  8. PRIVIGEN [Suspect]
     Active Substance: HUMAN IMMUNOGLOBULIN G
     Dosage: 100 MG/KG
     Route: 042
     Dates: start: 20150614
  9. PRIVIGEN [Suspect]
     Active Substance: HUMAN IMMUNOGLOBULIN G
     Dosage: 100 MG/KG
     Route: 042
     Dates: start: 20150616
  10. RITUXIMAB [Concomitant]
     Active Substance: RITUXIMAB
     Indication: PRODUCT USED FOR UNKNOWN INDICATION
     Dosage: 500 MG, UNK
     Route: 042
     Dates: start: 20160617
  11. PRIVIGEN [Suspect]
     Active Substance: HUMAN IMMUNOGLOBULIN G
     Dosage: 100 MG/KG, UNK
     Route: 042
  12. PRIVIGEN [Suspect]
     Active Substance: HUMAN IMMUNOGLOBULIN G
     Dosage: 100 MG/KG
     Route: 042
     Dates: start: 20150612
  13. PRIVIGEN [Suspect]
     Active Substance: HUMAN IMMUNOGLOBULIN G
     Dosage: 100 MG/KG
     Route: 042
     Dates: start: 20150615
  14. PRIVIGEN [Suspect]
     Active Substance: HUMAN IMMUNOGLOBULIN G
     Dosage: 100 MG/KG
     Route: 042
     Dates: start: 20150605
  15. ECULIZUMAB [Concomitant]
     Active Substance: ECULIZUMAB
     Dosage: 600 MG, QD
     Route: 042
     Dates: start: 20150619, end: 20150624

REACTIONS (1)
  - Anti A antibody positive [Recovered/Resolved]

NARRATIVE: CASE EVENT DATE: 20150615
